FAERS Safety Report 4485271-8 (Version None)
Quarter: 2004Q4

REPORT INFORMATION
  Report Type: 
  Country: None (occurrence: None)
  Receive Date: 20041022
  Receipt Date: 20041022
  Transmission Date: 20050328
  Serious: Yes (Disabling)
  Sender: FDA-Public Use
  Company Number: None

PATIENT
  Age: 41 Year
  Sex: Male
  Weight: 117.028 kg

DRUGS (1)
  1. CIPRO XR [Suspect]
     Indication: URINARY TRACT INFECTION
     Dosage: 1000 MG ONCE A DAY ORAL
     Route: 048
     Dates: start: 20040804, end: 20040806

REACTIONS (12)
  - ABASIA [None]
  - ABDOMINAL PAIN [None]
  - ARTHROPATHY [None]
  - ASTHENIA [None]
  - DYSPEPSIA [None]
  - FATIGUE [None]
  - MYALGIA [None]
  - PAIN IN EXTREMITY [None]
  - PARAESTHESIA [None]
  - SKIN BURNING SENSATION [None]
  - TENDON DISORDER [None]
  - VISION BLURRED [None]
